FAERS Safety Report 6269756-X (Version None)
Quarter: 2009Q3

REPORT INFORMATION
  Report Type: 
  Country: None (occurrence: None)
  Receive Date: 20090716
  Receipt Date: 20090710
  Transmission Date: 20100115
  Serious: Yes (Hospitalization)
  Sender: FDA-Public Use
  Company Number: FR-JNJFOC-20090703503

PATIENT
  Age: 73 Year
  Sex: Female

DRUGS (2)
  1. HALDOL DECANOAS [Suspect]
     Indication: DELUSION
     Route: 065
  2. RISPERDAL CONSTA [Suspect]
     Indication: DELUSION
     Route: 030

REACTIONS (2)
  - DELUSIONAL DISORDER, UNSPECIFIED TYPE [None]
  - TARDIVE DYSKINESIA [None]
